FAERS Safety Report 17460277 (Version 1)
Quarter: 2020Q1

REPORT INFORMATION
  Report Type: Report from Study
  Country: None (occurrence: US)
  Receive Date: 20200225
  Receipt Date: 20200225
  Transmission Date: 20200409
  Serious: Yes (Hospitalization)
  Sender: FDA-Public Use
  Company Number: US-ABBVIE-20K-163-3290461-00

PATIENT
  Sex: Male

DRUGS (2)
  1. VENCLEXTA [Suspect]
     Active Substance: VENETOCLAX
     Indication: CHRONIC LYMPHOCYTIC LEUKAEMIA
     Route: 048
     Dates: start: 20200123
  2. VENCLEXTA [Suspect]
     Active Substance: VENETOCLAX
     Indication: PROSTATE CANCER
     Route: 048

REACTIONS (4)
  - Cardiac tamponade [Unknown]
  - Pericarditis [Unknown]
  - Multi-organ disorder [Unknown]
  - Pneumonia [Unknown]

NARRATIVE: CASE EVENT DATE: 2020
